FAERS Safety Report 22323111 (Version 1)
Quarter: 2023Q2

REPORT INFORMATION
  Report Type: Spontaneous
  Country: US (occurrence: None)
  Receive Date: 20230512
  Receipt Date: 20230512
  Transmission Date: 20230721
  Serious: Yes (Other)
  Sender: FDA-Public Use
  Company Number: None

PATIENT
  Age: 49 Year
  Sex: Female
  Weight: 74.7 kg

DRUGS (12)
  1. KESIMPTA [Suspect]
     Active Substance: OFATUMUMAB
     Indication: Relapsing-remitting multiple sclerosis
     Dosage: OTHER FREQUENCY : INITIAL DOSE;?
     Route: 058
     Dates: start: 20230505, end: 20230505
  2. LEVOTHYROXINE [Concomitant]
     Active Substance: LEVOTHYROXINE
  3. WELLBUTRIN XL [Concomitant]
     Active Substance: BUPROPION HYDROCHLORIDE
  4. METOPROLOL [Concomitant]
     Active Substance: METOPROLOL
  5. LINZESS [Concomitant]
     Active Substance: LINACLOTIDE
  6. CLONAZEPAM [Concomitant]
     Active Substance: CLONAZEPAM
  7. ALBUTEROL [Concomitant]
     Active Substance: ALBUTEROL
  8. VITAMIN D3 [Concomitant]
     Active Substance: CHOLECALCIFEROL
  9. FLUTICASONE PROPIONATE [Concomitant]
     Active Substance: FLUTICASONE PROPIONATE
  10. BENADRYL [Concomitant]
     Active Substance: DIPHENHYDRAMINE HYDROCHLORIDE
  11. IBUPROFEN [Concomitant]
     Active Substance: IBUPROFEN
  12. ALLEGRA [Concomitant]
     Active Substance: FEXOFENADINE HYDROCHLORIDE

REACTIONS (14)
  - Injection related reaction [None]
  - Palpitations [None]
  - Vomiting [None]
  - Petechiae [None]
  - Chills [None]
  - Musculoskeletal stiffness [None]
  - Pyrexia [None]
  - Headache [None]
  - Muscle spasms [None]
  - Confusional state [None]
  - Tremor [None]
  - Fatigue [None]
  - Aphasia [None]
  - Memory impairment [None]

NARRATIVE: CASE EVENT DATE: 20230505
